FAERS Safety Report 5336710-1 (Version None)
Quarter: 2007Q2

REPORT INFORMATION
  Report Type: 
  Country: None (occurrence: None)
  Receive Date: 20070524
  Receipt Date: 20070524
  Transmission Date: 20071010
  Serious: Yes (Hospitalization)
  Sender: FDA-Public Use
  Company Number: None

PATIENT
  Age: 48 Year
  Sex: Male

DRUGS (2)
  1. CYTARABINE [Suspect]
     Indication: ACUTE MYELOID LEUKAEMIA
     Dosage: CYCLE STARTED 12-27-06
     Dates: start: 20061227
  2. FILGRASTIM [Concomitant]

REACTIONS (2)
  - PANCYTOPENIA [None]
  - PYREXIA [None]
